FAERS Safety Report 4712742-9 (Version None)
Quarter: 2005Q3

REPORT INFORMATION
  Report Type: 
  Country: None (occurrence: None)
  Receive Date: 20050701
  Receipt Date: 20050331
  Transmission Date: 20060218
  Serious: Yes (Other)
  Sender: FDA-Public Use
  Company Number: 2005046179

PATIENT
  Age: 63 Year
  Sex: Female
  Weight: 65.7716 kg

DRUGS (6)
  1. ZOLOFT [Suspect]
     Indication: ANXIETY
     Dosage: UNK (1 IN 1 D), ORAL
     Route: 048
     Dates: start: 20050218
  2. CLONAZEPAM [Suspect]
     Indication: ANXIETY
     Dosage: 1.5 MG (0.5 MG, 3 IN 1 D), UNKNOWN
     Route: 065
     Dates: start: 20041101
  3. LANSOPRAZOLE [Suspect]
     Indication: STOMACH DISCOMFORT
     Route: 065
  4. SIMVASTATIN [Concomitant]
  5. ATENOLOL [Concomitant]
  6. ESTRATEST H.S. [Concomitant]

REACTIONS (27)
  - ANOREXIA [None]
  - ANXIETY [None]
  - DIARRHOEA [None]
  - DIZZINESS [None]
  - DRUG INEFFECTIVE [None]
  - EAR DISCOMFORT [None]
  - EMOTIONAL DISTRESS [None]
  - EYE DISORDER [None]
  - FATIGUE [None]
  - FEELING ABNORMAL [None]
  - HYPERACUSIS [None]
  - INSOMNIA [None]
  - INTESTINAL FUNCTIONAL DISORDER [None]
  - INTRAOCULAR PRESSURE TEST [None]
  - LIMB DISCOMFORT [None]
  - MUSCULAR WEAKNESS [None]
  - MYDRIASIS [None]
  - NERVOUSNESS [None]
  - PANIC REACTION [None]
  - PARAESTHESIA [None]
  - STOMACH DISCOMFORT [None]
  - TINNITUS [None]
  - TREMOR [None]
  - VISION BLURRED [None]
  - VISUAL BRIGHTNESS [None]
  - VULVOVAGINAL DISCOMFORT [None]
  - WEIGHT DECREASED [None]
